FAERS Safety Report 11656721 (Version 2)
Quarter: 2015Q4

REPORT INFORMATION
  Report Type: Report from Study
  Country: AU (occurrence: AU)
  Receive Date: 20151023
  Receipt Date: 20151026
  Transmission Date: 20160304
  Serious: Yes (Other)
  Sender: FDA-Public Use
  Company Number: AU-REGENERON PHARMACEUTICALS, INC.-2015-10597

PATIENT

DRUGS (1)
  1. EYLEA [Suspect]
     Active Substance: AFLIBERCEPT
     Indication: NEOVASCULAR AGE-RELATED MACULAR DEGENERATION
     Dosage: 2 MG MILLIGRAM(S), 3 MONTHLY
     Route: 031

REACTIONS (9)
  - Age-related macular degeneration [Unknown]
  - Systemic lupus erythematosus [Unknown]
  - Arthralgia [Unknown]
  - Eye haemorrhage [Unknown]
  - Vision blurred [Unknown]
  - Peripheral swelling [Unknown]
  - Allergy to chemicals [Unknown]
  - Infection [Unknown]
  - Depression [Recovered/Resolved]
